FAERS Safety Report 5235329-0 (Version None)
Quarter: 2007Q1

REPORT INFORMATION
  Report Type: 
  Country: None (occurrence: None)
  Receive Date: 20070207
  Receipt Date: 20070207
  Transmission Date: 20070707
  Serious: Yes (Life-Threatening, Hospitalization, Other)
  Sender: FDA-Public Use
  Company Number: None

PATIENT
  Sex: Female
  Weight: 58.9676 kg

DRUGS (1)
  1. ESTRADIOL VALERATE [Suspect]
     Indication: HYSTERECTOMY
     Dosage: 10 MG    3 WEEKS  IM
     Route: 030
     Dates: start: 19950601, end: 20061201

REACTIONS (6)
  - CHOLELITHIASIS [None]
  - DYSPEPSIA [None]
  - PALPITATIONS [None]
  - PORTAL VEIN THROMBOSIS [None]
  - SUPRAVENTRICULAR EXTRASYSTOLES [None]
  - VENA CAVA THROMBOSIS [None]
